FAERS Safety Report 24625016 (Version 2)
Quarter: 2024Q4

REPORT INFORMATION
  Report Type: Spontaneous
  Country: US (occurrence: US)
  Receive Date: 20241115
  Receipt Date: 20241218
  Transmission Date: 20250115
  Serious: No
  Sender: ALEXION PHARMACEUTICALS
  Company Number: US-AstraZeneca-CH-00746330AP

PATIENT

DRUGS (4)
  1. FASENRA [Suspect]
     Active Substance: BENRALIZUMAB
     Dosage: 30 MILLIGRAM PER MILLILITRE, Q8W
  2. FASENRA [Suspect]
     Active Substance: BENRALIZUMAB
     Dosage: 30 MILLIGRAM PER MILLILITRE, Q8W
     Route: 058
  3. FASENRA [Suspect]
     Active Substance: BENRALIZUMAB
     Dosage: 30 MILLIGRAM PER MILLILITRE, Q8W
  4. FASENRA [Suspect]
     Active Substance: BENRALIZUMAB
     Dosage: 30 MILLIGRAM PER MILLILITRE, Q8W
     Route: 058

REACTIONS (4)
  - Nervousness [Unknown]
  - Injection site injury [Unknown]
  - Wrong technique in device usage process [Unknown]
  - Drug dose omission by device [Unknown]
